FAERS Safety Report 5455298-8 (Version None)
Quarter: 2007Q3

REPORT INFORMATION
  Report Type: 
  Country: None (occurrence: None)
  Receive Date: 20070913
  Receipt Date: 20070913
  Transmission Date: 20080115
  Serious: Yes (Hospitalization)
  Sender: FDA-Public Use
  Company Number: None

PATIENT
  Age: 75 Year
  Sex: Male

DRUGS (2)
  1. TRIMETHOPRIM-SULFAMETHOXAZOLE [Suspect]
     Indication: INFECTION
     Dosage: 160MG BID IV
     Route: 042
     Dates: start: 20070820, end: 20070830
  2. LEVOFLOXACIN [Suspect]
     Indication: INFECTION
     Dosage: 500MG EVERY DAY IV
     Route: 042
     Dates: start: 20070820, end: 20070830

REACTIONS (1)
  - INTERNATIONAL NORMALISED RATIO INCREASED [None]
